FAERS Safety Report 20713684 (Version 17)
Quarter: 2025Q1

REPORT INFORMATION
  Report Type: Report from Study
  Country: US (occurrence: US)
  Receive Date: 20220415
  Receipt Date: 20250306
  Transmission Date: 20250408
  Serious: Yes (Other)
  Sender: TAKEDA
  Company Number: US-TAKEDA-2021TUS050529

PATIENT
  Sex: Female
  Weight: 62 kg

DRUGS (40)
  1. HUMAN IMMUNOGLOBULIN G [Suspect]
     Active Substance: HUMAN IMMUNOGLOBULIN G
     Indication: Immunodeficiency common variable
     Dosage: 20 GRAM, Q2WEEKS
     Dates: start: 20210728
  2. HUMAN IMMUNOGLOBULIN G [Suspect]
     Active Substance: HUMAN IMMUNOGLOBULIN G
     Dosage: 25 GRAM, Q2 WEEKS
  3. HUMAN IMMUNOGLOBULIN G [Suspect]
     Active Substance: HUMAN IMMUNOGLOBULIN G
     Dosage: 25 GRAM, Q2 WEEKS
  4. INFLUENZA VIRUS VACCINE [Suspect]
     Active Substance: INFLUENZA VIRUS VACCINE
     Indication: Product used for unknown indication
  5. ACETAMINOPHEN [Concomitant]
     Active Substance: ACETAMINOPHEN
  6. OMEPRAZOLE [Concomitant]
     Active Substance: OMEPRAZOLE
  7. MELATONIN [Concomitant]
     Active Substance: MELATONIN
  8. Omega [Concomitant]
  9. ALBUTEROL\IPRATROPIUM [Concomitant]
     Active Substance: ALBUTEROL\IPRATROPIUM
  10. ADVAIR HFA [Concomitant]
     Active Substance: FLUTICASONE PROPIONATE\SALMETEROL XINAFOATE
  11. SINGULAIR [Concomitant]
     Active Substance: MONTELUKAST SODIUM
  12. OFLOXACIN [Concomitant]
     Active Substance: OFLOXACIN
  13. SODIUM CHLORIDE [Concomitant]
     Active Substance: SODIUM CHLORIDE
  14. MAGNESIUM [Concomitant]
     Active Substance: MAGNESIUM
  15. AZELASTINE HYDROCHLORIDE [Concomitant]
     Active Substance: AZELASTINE HYDROCHLORIDE
  16. ALBUTEROL SULFATE [Concomitant]
     Active Substance: ALBUTEROL SULFATE
  17. VITAMIN D3 [Concomitant]
     Active Substance: CHOLECALCIFEROL
  18. VITAMIN E [Concomitant]
     Active Substance: .ALPHA.-TOCOPHEROL
  19. ALBUTEROL SULFATE [Concomitant]
     Active Substance: ALBUTEROL SULFATE
  20. MEDROL [Concomitant]
     Active Substance: METHYLPREDNISOLONE
  21. Acidophilus/pectin [Concomitant]
  22. ATIVAN [Concomitant]
     Active Substance: LORAZEPAM
  23. LIDOCAINE\PRILOCAINE [Concomitant]
     Active Substance: LIDOCAINE\PRILOCAINE
  24. CALCIUM [Concomitant]
     Active Substance: CALCIUM
  25. DIPHENHYDRAMINE HYDROCHLORIDE [Concomitant]
     Active Substance: DIPHENHYDRAMINE HYDROCHLORIDE
  26. ATROVENT [Concomitant]
     Active Substance: IPRATROPIUM BROMIDE
  27. Digestive Advantage [Concomitant]
  28. PATANASE [Concomitant]
     Active Substance: OLOPATADINE HYDROCHLORIDE
  29. ZINC GLUCONATE [Concomitant]
     Active Substance: ZINC GLUCONATE
  30. Maalox Advanced [Concomitant]
  31. VENTOLIN HFA [Concomitant]
     Active Substance: ALBUTEROL SULFATE
  32. ZINC [Concomitant]
     Active Substance: ZINC
  33. PRASTERONE [Concomitant]
     Active Substance: PRASTERONE
  34. DIPHENHYDRAMINE [Concomitant]
     Active Substance: DIPHENHYDRAMINE
  35. EPINEPHRINE [Concomitant]
     Active Substance: EPINEPHRINE
  36. PRILOSEC [Concomitant]
     Active Substance: OMEPRAZOLE MAGNESIUM
  37. OMEGA-3 ACIDS [Concomitant]
     Active Substance: OMEGA-3 FATTY ACIDS
  38. AZELASTINE [Concomitant]
     Active Substance: AZELASTINE
  39. ALBUTEROL [Concomitant]
     Active Substance: ALBUTEROL
  40. ACIDOPHILUS [Concomitant]
     Active Substance: LACTOBACILLUS ACIDOPHILUS

REACTIONS (42)
  - Pneumonia [Unknown]
  - Gastrooesophageal reflux disease [Unknown]
  - Sinus disorder [Recovered/Resolved]
  - Ear infection [Recovered/Resolved]
  - Illness [Not Recovered/Not Resolved]
  - Otorrhoea [Unknown]
  - Blood calcium decreased [Unknown]
  - Blood magnesium decreased [Unknown]
  - Infection [Not Recovered/Not Resolved]
  - Eructation [Unknown]
  - Energy increased [Unknown]
  - Therapeutic product effect decreased [Unknown]
  - Multiple allergies [Unknown]
  - Otitis media [Unknown]
  - Productive cough [Unknown]
  - Weight decreased [Unknown]
  - Dermatitis contact [Unknown]
  - Nasopharyngitis [Unknown]
  - Poor venous access [Unknown]
  - Lack of administration site rotation [Unknown]
  - Inappropriate schedule of product administration [Unknown]
  - Gait inability [Unknown]
  - Sinusitis [Unknown]
  - Upper respiratory tract infection [Unknown]
  - Asthma [Unknown]
  - Hypoaesthesia [Unknown]
  - Infusion site mass [Unknown]
  - Abdominal discomfort [Unknown]
  - Epistaxis [Unknown]
  - Influenza [Unknown]
  - Rhinorrhoea [Unknown]
  - Oxygen saturation decreased [Unknown]
  - Oropharyngeal pain [Unknown]
  - Swelling [Unknown]
  - Lymphadenopathy [Unknown]
  - Dyspepsia [Unknown]
  - Infusion site reaction [Unknown]
  - Anxiety [Unknown]
  - Chest discomfort [Unknown]
  - Dyspnoea [Unknown]
  - Urticaria [Unknown]
  - Fatigue [Unknown]
